FAERS Safety Report 5719405-1 (Version None)
Quarter: 2008Q2

REPORT INFORMATION
  Report Type: 
  Country: None (occurrence: None)
  Receive Date: 20080428
  Receipt Date: 20080415
  Transmission Date: 20081010
  Serious: Yes (Other)
  Sender: FDA-Public Use
  Company Number: JP-NOVOPROD-274558

PATIENT
  Age: 52 Year
  Sex: Male

DRUGS (1)
  1. PENFILL 30R CHU [Suspect]
     Indication: TYPE 1 DIABETES MELLITUS
     Route: 058

REACTIONS (3)
  - HYPOGLYCAEMIA [None]
  - OVERDOSE [None]
  - SUICIDE ATTEMPT [None]
